FAERS Safety Report 7019517-9 (Version None)
Quarter: 2010Q3

REPORT INFORMATION
  Report Type: 
  Country: None (occurrence: None)
  Receive Date: 20100928
  Receipt Date: 20100914
  Transmission Date: 20110219
  Serious: Yes (Other)
  Sender: FDA-Public Use
  Company Number: DE-GENENTECH-304757

PATIENT
  Sex: Male
  Weight: 100 kg

DRUGS (4)
  1. MABTHERA [Suspect]
     Indication: B-CELL LYMPHOMA
     Dosage: 375 MG/M2, UNK
     Route: 042
     Dates: start: 20080201, end: 20090503
  2. MABTHERA [Suspect]
     Dosage: UNK
     Route: 042
     Dates: start: 20100701
  3. PARACETAMOL [Concomitant]
     Indication: PREMEDICATION
     Dosage: UNK
     Route: 065
     Dates: start: 20080201
  4. CLEMASTINE FUMARATE [Concomitant]
     Indication: PREMEDICATION
     Dosage: UNK
     Dates: start: 20080201

REACTIONS (7)
  - ABDOMINAL DISCOMFORT [None]
  - ASTHENIA [None]
  - DECREASED APPETITE [None]
  - FATIGUE [None]
  - GAMMA-GLUTAMYLTRANSFERASE INCREASED [None]
  - MALAISE [None]
  - NAUSEA [None]
